FAERS Safety Report 6419922-5 (Version None)
Quarter: 2009Q4

REPORT INFORMATION
  Report Type: 
  Country: None (occurrence: None)
  Receive Date: 20091029
  Receipt Date: 20091023
  Transmission Date: 20100525
  Serious: Yes (Hospitalization)
  Sender: FDA-Public Use
  Company Number: US-SANOFI-SYNTHELABO-F01200901035

PATIENT
  Sex: Male
  Weight: 93 kg

DRUGS (8)
  1. INSULIN [Concomitant]
  2. METOPROLOL [Concomitant]
  3. AMLODIPINE [Concomitant]
  4. ASPIRIN [Concomitant]
  5. ATORVASTATIN [Concomitant]
  6. CLOPIDOGREL [Concomitant]
     Dosage: UNK
     Dates: start: 20060104, end: 20090424
  7. PLAVIX [Suspect]
     Indication: ANTIPLATELET THERAPY
     Dosage: 6 DF
     Route: 048
     Dates: start: 20090423, end: 20090424
  8. PLAVIX [Suspect]
     Dosage: 75 MG OR 150 MG DAILY
     Route: 048
     Dates: start: 20090424, end: 20091001

REACTIONS (1)
  - PERIPHERAL EMBOLISM [None]
